FAERS Safety Report 4629449-9 (Version None)
Quarter: 2005Q2

REPORT INFORMATION
  Report Type: 
  Country: None (occurrence: None)
  Receive Date: 20050405
  Receipt Date: 20050321
  Transmission Date: 20051028
  Serious: Yes (Hospitalization)
  Sender: FDA-Public Use
  Company Number: 2005048612

PATIENT
  Age: 68 Year
  Sex: Female
  Weight: 48 kg

DRUGS (8)
  1. DOXORUBICIN HYDROCHLORIDE [Suspect]
     Indication: NON-HODGKIN'S LYMPHOMA
     Dosage: CYCLIC, INTRAVENOUS
     Route: 042
     Dates: start: 20040421, end: 20041007
  2. CYTARABINE [Suspect]
     Indication: NON-HODGKIN'S LYMPHOMA
     Dosage: CYCLIC, INTRATHECAL
     Route: 037
     Dates: start: 20040421, end: 20041007
  3. DEPO-MEDROL [Suspect]
     Indication: NON-HODGKIN'S LYMPHOMA
     Dosage: CYCLIC, INTRATHECAL
     Route: 037
     Dates: start: 20040421, end: 20041007
  4. CYCLOPHOSPHAMIDE [Suspect]
     Indication: NON-HODGKIN'S LYMPHOMA
     Dosage: CYCLIC, INTRAVENOUS
     Route: 042
     Dates: start: 20040421, end: 20041007
  5. VINCRISTINE [Suspect]
     Indication: NON-HODGKIN'S LYMPHOMA
     Dosage: CYCLIC, INTRAVENOUS
     Route: 042
     Dates: start: 20040421, end: 20041007
  6. PREDNISONE [Suspect]
     Indication: NON-HODGKIN'S LYMPHOMA
     Dosage: CYCLIC, INTRAVENOUS
     Route: 042
     Dates: start: 20040421, end: 20041007
  7. METHOTREXATE [Suspect]
     Indication: NON-HODGKIN'S LYMPHOMA
     Dosage: INTRATHECAL
     Route: 037
     Dates: start: 20040421, end: 20041007
  8. RITUXIMAB (RITUXIMAB) [Suspect]
     Indication: NON-HODGKIN'S LYMPHOMA
     Dosage: INTRAVENOUS
     Route: 042
     Dates: start: 20040421, end: 20041007

REACTIONS (4)
  - BALANCE DISORDER [None]
  - BRAIN DAMAGE [None]
  - CEREBELLAR ATROPHY [None]
  - CEREBRAL ATROPHY [None]
